FAERS Safety Report 9348616 (Version 3)
Quarter: 2013Q3

REPORT INFORMATION
  Report Type: Spontaneous
  Country: FR (occurrence: FR)
  Receive Date: 20130614
  Receipt Date: 20130917
  Transmission Date: 20140515
  Serious: Yes (Other)
  Sender: FDA-Public Use
  Company Number: FR-TEVA-412129ISR

PATIENT
  Age: 52 Year
  Sex: Female
  Weight: 60 kg

DRUGS (10)
  1. FUROSEMIDE TEVA 40 MG [Suspect]
     Dosage: 80 MILLIGRAM DAILY; AS FROM SEVERAL YEARS
     Route: 048
     Dates: end: 201306
  2. SOTALEX 80 [Concomitant]
     Dosage: 160 MILLIGRAM DAILY;
     Route: 048
  3. KARDEGIC 75 [Concomitant]
     Dosage: 75 MILLIGRAM DAILY;
  4. CALCIUM SANDOZ  500 [Concomitant]
  5. APROVEL 300 [Concomitant]
     Dosage: 300 MILLIGRAM DAILY;
  6. ALDACTONE 25 [Concomitant]
     Dosage: 25 MILLIGRAM DAILY; ALDACTONE 25 MG
  7. ALDACTONE 25 [Concomitant]
  8. LEVOTHYROX 100 [Concomitant]
  9. UNALPHA [Concomitant]
     Dosage: 2 DOSAGE FORMS DAILY;
  10. SPECIAFOLDINE [Concomitant]
     Dosage: 1 DOSAGE FORMS DAILY;

REACTIONS (16)
  - Dizziness [Recovered/Resolved]
  - Somnolence [Unknown]
  - Tachycardia [Recovered/Resolved]
  - Malaise [Recovered/Resolved]
  - Weight increased [Recovered/Resolved]
  - Somnolence [Unknown]
  - Face oedema [Recovered/Resolved]
  - Oedema peripheral [Recovered/Resolved]
  - Urine analysis abnormal [Unknown]
  - Dyspnoea [Unknown]
  - Heart rate increased [Unknown]
  - Asthenia [Recovering/Resolving]
  - Nausea [Recovering/Resolving]
  - Dysgeusia [Recovering/Resolving]
  - Rash [Recovering/Resolving]
  - Drug ineffective [Recovered/Resolved]
